FAERS Safety Report 20673748 (Version 1)
Quarter: 2022Q2

REPORT INFORMATION
  Report Type: Report from Study
  Country: US (occurrence: US)
  Receive Date: 20220405
  Receipt Date: 20220405
  Transmission Date: 20220720
  Serious: Yes (Other)
  Sender: FDA-Public Use
  Company Number: US-SUN PHARMACEUTICAL INDUSTRIES LTD-2022R1-332315

PATIENT
  Age: 29 Year
  Sex: Female

DRUGS (2)
  1. DEXAMETHASONE [Suspect]
     Active Substance: DEXAMETHASONE
     Indication: Severe acute respiratory syndrome
     Dosage: UNK
     Route: 065
  2. REMDESIVIR [Concomitant]
     Active Substance: REMDESIVIR
     Indication: Severe acute respiratory syndrome
     Dosage: UNK
     Route: 065

REACTIONS (3)
  - Acute respiratory failure [Unknown]
  - Live birth [Unknown]
  - Exposure during pregnancy [Unknown]
